FAERS Safety Report 15755389 (Version 1)
Quarter: 2018Q4

REPORT INFORMATION
  Report Type: Spontaneous
  Country: US (occurrence: US)
  Receive Date: 20181206
  Receipt Date: 20181206
  Transmission Date: 20190205
  Serious: No
  Sender: FDA-Public Use
  Company Number: None

PATIENT
  Age: 10 Month
  Sex: Female
  Weight: 7.2 kg

DRUGS (4)
  1. PAIN RELIEVER [Concomitant]
  2. EQUATE IBUPROFEN [Suspect]
     Active Substance: IBUPROFEN
     Indication: ANALGESIC THERAPY
     Route: 048
     Dates: start: 20180131, end: 20181206
  3. OMEPRAZOLE. [Concomitant]
     Active Substance: OMEPRAZOLE
  4. MULTI VITAMIN [Concomitant]
     Active Substance: VITAMINS

REACTIONS (3)
  - General symptom [None]
  - Dysuria [None]
  - Flatulence [None]

NARRATIVE: CASE EVENT DATE: 20181201
